FAERS Safety Report 5903488-X (Version None)
Quarter: 2008Q3

REPORT INFORMATION
  Report Type: 
  Country: None (occurrence: None)
  Receive Date: 20080919
  Receipt Date: 20080630
  Transmission Date: 20090109
  Serious: No
  Sender: FDA-Public Use
  Company Number: US-WYE-H04824108

PATIENT
  Age: 56 Year
  Sex: Female

DRUGS (2)
  1. PRISTIQ [Suspect]
     Indication: MAJOR DEPRESSION
     Dosage: 50 MG 1X PER 1 DAY, ORAL
     Route: 048
     Dates: start: 20080625
  2. ACTIVELLA [Concomitant]

REACTIONS (4)
  - ABNORMAL DREAMS [None]
  - CONDITION AGGRAVATED [None]
  - INSOMNIA [None]
  - MIGRAINE [None]
